FAERS Safety Report 10711496 (Version 1)
Quarter: 2015Q1

REPORT INFORMATION
  Report Type: Spontaneous
  Country: US (occurrence: US)
  Receive Date: 20150114
  Receipt Date: 20150114
  Transmission Date: 20150721
  Serious: No
  Sender: FDA-Public Use
  Company Number: US-LUNDBECK-DKLU1106745

PATIENT
  Age: 76 Year
  Sex: Male

DRUGS (4)
  1. OTHER UNSPECIFIED MEDS [Concomitant]
     Indication: PRODUCT USED FOR UNKNOWN INDICATION
  2. NORTHERA [Suspect]
     Active Substance: DROXIDOPA
     Indication: ORTHOSTATIC HYPOTENSION
     Route: 054
     Dates: start: 20141208
  3. NORTHERA [Suspect]
     Active Substance: DROXIDOPA
     Indication: PARKINSON^S DISEASE
  4. NORTHERA [Suspect]
     Active Substance: DROXIDOPA
     Indication: MULTIPLE SYSTEM ATROPHY

REACTIONS (1)
  - Blood pressure increased [Unknown]

NARRATIVE: CASE EVENT DATE: 20141215
